FAERS Safety Report 6839880-9 (Version None)
Quarter: 2010Q3

REPORT INFORMATION
  Report Type: 
  Country: None (occurrence: None)
  Receive Date: 20100708
  Receipt Date: 20100618
  Transmission Date: 20110219
  Serious: Yes (Hospitalization)
  Sender: FDA-Public Use
  Company Number: CV20100279

PATIENT
  Age: 54 Year
  Sex: Female

DRUGS (12)
  1. PROPOFOL [Suspect]
     Indication: INDUCTION OF ANAESTHESIA
     Dosage: 800 MG INTRAVENOUS
     Route: 042
     Dates: start: 20100517, end: 20100517
  2. ATRACURIUM HOSPIRA (ATRACURIUM) (ATRACURIUM) [Concomitant]
  3. ULTIVA [Concomitant]
  4. CLAMOXYL (AMOXICILLIN) (AMOXICILLIN) [Concomitant]
  5. METRONIDAZOLE MACO PHARMA (METRONIDAZOLE) (METRONIDAZOLE) [Concomitant]
  6. NORMACOL LAVEMENT ADULTES (BACTRIM) (BACTRIM) [Concomitant]
  7. MORPHINE LAVOISIRE (MORPHINE) (MORPHINE) [Concomitant]
  8. BETADINE DERMIQUE (POVIDONE-IODINE) (POVIDONE-IODINE) [Concomitant]
  9. NAROPEINE (ROPIVACAINE HYDROCHLORIDE) (ROPIVACAINE HYDROCHLORIDE) [Concomitant]
  10. DROLEPTAN (DROPERIDOL) (DROPERIDOL) [Concomitant]
  11. LOVENOX (HEPARIN-FRACTION, SODIUM SALT) (HEPARIN-FRACTION, SODIUM SALT [Concomitant]
  12. KETAMINE PANPHARMA (KETAMINE HYDROCHLORIDE) (KETAMINE HYDROCHLORIDE) [Concomitant]

REACTIONS (4)
  - LYMPHOPENIA [None]
  - POST PROCEDURAL COMPLICATION [None]
  - RENAL FAILURE ACUTE [None]
  - RENAL TUBULAR NECROSIS [None]
